FAERS Safety Report 9713271 (Version 1)
Quarter: 2013Q4

REPORT INFORMATION
  Report Type: Spontaneous
  Country: US (occurrence: None)
  Receive Date: 20131125
  Receipt Date: 20131125
  Transmission Date: 20140711
  Serious: Yes (Other)
  Sender: FDA-Public Use
  Company Number: None

PATIENT
  Age: 25 Year
  Sex: Male

DRUGS (5)
  1. CITALOPRAM [Suspect]
     Indication: DEPRESSION
     Route: 048
     Dates: start: 20130815, end: 20130918
  2. ARIPIPRAZOLE [Concomitant]
  3. LITHIUM CARBONATE [Concomitant]
  4. MIRTAZAPINE [Concomitant]
  5. PALIPERIDONE [Concomitant]

REACTIONS (4)
  - Heart rate increased [None]
  - Anxiety [None]
  - Akathisia [None]
  - Bundle branch block right [None]
